FAERS Safety Report 6099083-5 (Version None)
Quarter: 2009Q1

REPORT INFORMATION
  Report Type: 
  Country: None (occurrence: None)
  Receive Date: 20090302
  Receipt Date: 20090220
  Transmission Date: 20090719
  Serious: Yes (Congenital Anomaly)
  Sender: FDA-Public Use
  Company Number: FR-B.I. PHARMACEUTICALS,INC./RIDGEFIELD-2009-BP-02423BP

PATIENT
  Age: 0 Day

DRUGS (6)
  1. VIRAMUNE [Suspect]
     Indication: HIV INFECTION
     Route: 015
     Dates: start: 20050620
  2. DIDANOSINE [Suspect]
     Indication: HIV INFECTION
     Route: 015
     Dates: start: 20050523, end: 20050908
  3. EFAVIRENZ [Suspect]
     Indication: HIV INFECTION
     Dosage: 600MG
     Route: 015
     Dates: start: 20050523, end: 20050908
  4. EMTRIVA [Suspect]
     Indication: HIV INFECTION
     Dosage: 200MG
     Route: 015
     Dates: start: 20050523
  5. KALETRA [Suspect]
     Indication: HIV INFECTION
     Route: 015
     Dates: start: 20050908
  6. COMBIVIR [Suspect]
     Indication: HIV INFECTION
     Dates: start: 20050908

REACTIONS (1)
  - SPINA BIFIDA [None]
